FAERS Safety Report 25417375 (Version 3)
Quarter: 2025Q4

REPORT INFORMATION
  Report Type: Spontaneous
  Country: EU (occurrence: EU)
  Receive Date: 20250610
  Receipt Date: 20251003
  Transmission Date: 20260118
  Serious: Yes (Hospitalization, Disabling)
  Sender: PFIZER
  Company Number: EU-PFIZER INC-PV202500068275

PATIENT
  Age: 15 Year
  Sex: Female
  Weight: 60 kg

DRUGS (2)
  1. CIBINQO [Suspect]
     Active Substance: ABROCITINIB
     Dosage: 200 MG, DAILY
     Route: 048
     Dates: start: 20250327, end: 20250424
  2. CIBINQO [Suspect]
     Active Substance: ABROCITINIB
     Dosage: 150 MG, DAILY
     Route: 048
     Dates: start: 20250425, end: 20250521

REACTIONS (6)
  - Pulmonary embolism [Recovered/Resolved]
  - Nausea [Recovered/Resolved]
  - Dyspnoea [Recovered/Resolved]
  - Chest pain [Recovered/Resolved]
  - Headache [Recovered/Resolved]
  - Myalgia [Unknown]

NARRATIVE: CASE EVENT DATE: 20250401
